FAERS Safety Report 21039284 (Version 2)
Quarter: 2022Q3

REPORT INFORMATION
  Report Type: Spontaneous
  Country: US (occurrence: US)
  Receive Date: 20220704
  Receipt Date: 20220720
  Transmission Date: 20221026
  Serious: No
  Sender: FDA-Public Use
  Company Number: US-Calliditas-2022CAL00152

PATIENT
  Age: 53 Year
  Sex: Male

DRUGS (5)
  1. TARPEYO [Suspect]
     Active Substance: BUDESONIDE
     Indication: IgA nephropathy
     Dosage: 16 MG (4 MG CAPSULES) ONCE DAILY
     Route: 050
     Dates: start: 20220608
  2. CYCLOPHOSPHAMIDE [Suspect]
     Active Substance: CYCLOPHOSPHAMIDE
     Indication: IgA nephropathy
     Dosage: 50MG TWICE A DAY
  3. METOPROLOL [Concomitant]
     Active Substance: METOPROLOL
     Dosage: ER 50MG IN THE MORNING
  4. FUROSEMIDE [Concomitant]
     Active Substance: FUROSEMIDE
     Dosage: 40 MG TABLET ONCE A DAY IN THE MORNING
     Route: 048
  5. HYDROCHLOROTHIAZIDE\LISINOPRIL [Concomitant]
     Active Substance: HYDROCHLOROTHIAZIDE\LISINOPRIL

REACTIONS (1)
  - Fatigue [Not Recovered/Not Resolved]

NARRATIVE: CASE EVENT DATE: 20211201
